FAERS Safety Report 6197772-5 (Version None)
Quarter: 2009Q2

REPORT INFORMATION
  Report Type: 
  Country: None (occurrence: None)
  Receive Date: 20090521
  Receipt Date: 20090508
  Transmission Date: 20091009
  Serious: Yes (Other)
  Sender: FDA-Public Use
  Company Number: CA-GENENTECH-279818

PATIENT
  Sex: Female

DRUGS (2)
  1. XOLAIR [Suspect]
     Indication: ASTHMA
     Dosage: UNK
     Route: 065
     Dates: start: 20090225
  2. XOLAIR [Suspect]
     Indication: HYPERSENSITIVITY

REACTIONS (2)
  - LUNG INFECTION [None]
  - NASOPHARYNGITIS [None]
